FAERS Safety Report 6677579-2 (Version None)
Quarter: 2010Q2

REPORT INFORMATION
  Report Type: 
  Country: None (occurrence: None)
  Receive Date: 20100412
  Receipt Date: 20100218
  Transmission Date: 20101027
  Serious: No
  Sender: FDA-Public Use
  Company Number: US-ALEXION-A201000194

PATIENT
  Sex: Female
  Weight: 145 kg

DRUGS (7)
  1. SOLIRIS [Suspect]
     Indication: PAROXYSMAL NOCTURNAL HAEMOGLOBINURIA
     Dosage: 600 MG, QWKX4
     Route: 042
     Dates: start: 20091101
  2. SOLIRIS [Suspect]
     Dosage: 900 MG, Q2WKS
     Route: 042
  3. TRAMADOL HCL [Concomitant]
     Indication: MIGRAINE
     Dosage: UNK
     Route: 048
  4. ZIAC                               /01166101/ [Concomitant]
     Indication: BLOOD PRESSURE MANAGEMENT
     Dosage: UNK
     Route: 048
  5. ALTACE [Concomitant]
     Indication: BLOOD PRESSURE MANAGEMENT
     Dosage: UNK
     Route: 048
  6. ACIPHEX [Concomitant]
     Indication: GASTROOESOPHAGEAL REFLUX DISEASE
     Dosage: UNK
     Route: 048
  7. LORATADINE [Concomitant]
     Indication: MULTIPLE ALLERGIES
     Dosage: UNK
     Route: 048

REACTIONS (2)
  - BACK PAIN [None]
  - HEADACHE [None]
